FAERS Safety Report 4524601-5 (Version None)
Quarter: 2004Q4

REPORT INFORMATION
  Report Type: 
  Country: None (occurrence: None)
  Receive Date: 20041117
  Receipt Date: 20040913
  Transmission Date: 20050328
  Serious: Yes (Hospitalization)
  Sender: FDA-Public Use
  Company Number: US-JNJFOC-20040904142

PATIENT
  Age: 18 Year
  Sex: Male
  Weight: 78.0187 kg

DRUGS (4)
  1. LEVAQUIN [Suspect]
     Indication: PNEUMONIA MYCOPLASMAL
     Dosage: 500 MG
  2. MOTRIN [Concomitant]
  3. VICKS DAYTIME COLD (CAPSULES) ALL OTHER THERAPEUTIC PRODUCTS [Concomitant]
  4. TYLENOL PM (TYLENOL PM) [Concomitant]

REACTIONS (1)
  - PSYCHOTIC DISORDER [None]
